FAERS Safety Report 6077727-1 (Version None)
Quarter: 2009Q1

REPORT INFORMATION
  Report Type: 
  Country: None (occurrence: None)
  Receive Date: 20090213
  Receipt Date: 20090203
  Transmission Date: 20090719
  Serious: Yes (Other)
  Sender: FDA-Public Use
  Company Number: PHEH2009US01391

PATIENT
  Sex: Female

DRUGS (4)
  1. METHERGINE [Suspect]
     Indication: UTERINE ATONY
     Dosage: UNK
     Route: 030
     Dates: start: 20090123, end: 20090123
  2. METHERGINE [Suspect]
     Dosage: INTRAUTERINE
     Route: 050
  3. VITAMIN TAB [Concomitant]
  4. REPLIVA 21/7 [Concomitant]

REACTIONS (3)
  - DRUG EXPOSURE DURING PREGNANCY [None]
  - HYSTERECTOMY [None]
  - UTERINE ATONY [None]
